FAERS Safety Report 7544995-6 (Version None)
Quarter: 2011Q2

REPORT INFORMATION
  Report Type: 
  Country: None (occurrence: None)
  Receive Date: 20110614
  Receipt Date: 20110118
  Transmission Date: 20111010
  Serious: Yes (Other)
  Sender: FDA-Public Use
  Company Number: US-BAYER-201026791NA

PATIENT
  Age: 27 Year
  Sex: Female
  Weight: 63.492 kg

DRUGS (13)
  1. YAZ [Suspect]
     Indication: ENDOMETRIOSIS
  2. INDERAL [Concomitant]
     Dosage: 120 MG, QD
     Route: 048
  3. YAZ [Suspect]
     Indication: CYST
  4. AMANTADINE HCL [Concomitant]
     Indication: FATIGUE
  5. TYLENOL PM [Concomitant]
  6. BETASERON [Concomitant]
     Dosage: 0.3 MG, QD
     Route: 058
  7. IMITREX [Concomitant]
  8. SYMMETREL [Concomitant]
     Dosage: 100 MG, QD
     Route: 048
  9. MULTI-VITAMINS [Concomitant]
     Indication: SUPPLEMENTATION THERAPY
  10. YAZ [Suspect]
     Indication: VAGINAL HAEMORRHAGE
  11. YAZ [Suspect]
     Indication: ABDOMINAL PAIN
     Route: 048
     Dates: start: 20061201, end: 20090501
  12. TYLENOL (CAPLET) [Concomitant]
     Indication: ANALGESIC THERAPY
     Dosage: UNK UNK, PRN
  13. MAALOX MULTI-SYMPTOM [Concomitant]
     Indication: DYSPEPSIA

REACTIONS (4)
  - CHOLECYSTITIS CHRONIC [None]
  - CHOLESTEROSIS [None]
  - PAIN [None]
  - CHOLECYSTITIS [None]
